FAERS Safety Report 9717541 (Version 2)
Quarter: 2015Q3

REPORT INFORMATION
  Report Type: Spontaneous
  Country: US (occurrence: US)
  Receive Date: 20131127
  Receipt Date: 20150804
  Transmission Date: 20151125
  Serious: No
  Sender: FDA-Public Use
  Company Number: US-GILEAD-2009-0020852

PATIENT
  Age: 82 Year
  Sex: Female
  Weight: 63.5 kg

DRUGS (14)
  1. OXYGEN. [Concomitant]
     Active Substance: OXYGEN
  2. CALCIUM CITRATE [Concomitant]
     Active Substance: CALCIUM CITRATE
  3. MIRALAX [Concomitant]
     Active Substance: POLYETHYLENE GLYCOL 3350
  4. VENTAVIS [Concomitant]
     Active Substance: ILOPROST
  5. PARACETAMOL/TRAMADOL HYDROCHLORIDE [Concomitant]
  6. POLYETHYLENE GLYCOL [Concomitant]
     Active Substance: POLYETHYLENE GLYCOLS
  7. PREDNISONE. [Concomitant]
     Active Substance: PREDNISONE
  8. PRILOSEC [Concomitant]
     Active Substance: OMEPRAZOLE MAGNESIUM
  9. XANAX [Concomitant]
     Active Substance: ALPRAZOLAM
  10. LETAIRIS [Suspect]
     Active Substance: AMBRISENTAN
     Indication: PULMONARY ARTERIAL HYPERTENSION
     Route: 048
     Dates: start: 20090216
  11. NORVASC [Concomitant]
     Active Substance: AMLODIPINE BESYLATE
  12. ALTACE [Concomitant]
     Active Substance: RAMIPRIL
  13. NATURAL CO-Q10 [Concomitant]
  14. ASPIRIN. [Concomitant]
     Active Substance: ASPIRIN

REACTIONS (1)
  - Peripheral swelling [Unknown]
